FAERS Safety Report 23796033 (Version 1)
Quarter: 2024Q2

REPORT INFORMATION
  Report Type: Report from Study
  Country: US (occurrence: US)
  Receive Date: 20240429
  Receipt Date: 20240429
  Transmission Date: 20240716
  Serious: Yes (Other)
  Sender: FDA-Public Use
  Company Number: US-ABBVIE-5734317

PATIENT
  Sex: Female

DRUGS (1)
  1. BOTOX [Suspect]
     Active Substance: ONABOTULINUMTOXINA
     Indication: Torticollis
     Dosage: TIME INTERVAL: AS NECESSARY
     Route: 065

REACTIONS (11)
  - Ankle operation [Unknown]
  - Concussion [Unknown]
  - Head injury [Unknown]
  - Pain [Unknown]
  - Migraine [Unknown]
  - Ligament rupture [Unknown]
  - Wrist fracture [Unknown]
  - Fall [Unknown]
  - Cervicogenic headache [Unknown]
  - Arthralgia [Unknown]
  - Headache [Unknown]
